FAERS Safety Report 8155123-0 (Version None)
Quarter: 2012Q1

REPORT INFORMATION
  Report Type: 
  Country: None (occurrence: None)
  Receive Date: 20120221
  Receipt Date: 20120208
  Transmission Date: 20120608
  Serious: Yes (Hospitalization)
  Sender: FDA-Public Use
  Company Number: DE-ROCHE-1038071

PATIENT
  Age: 53 Year
  Sex: Male
  Weight: 82 kg

DRUGS (5)
  1. BERODUAL [Concomitant]
     Dates: start: 20000101
  2. METHOTREXATE [Concomitant]
     Dates: start: 20110907
  3. FOLIC ACID [Concomitant]
     Dates: start: 20110907
  4. TEMSIROLIMUS [Concomitant]
     Dates: start: 20110907
  5. ACTEMRA [Suspect]
     Indication: RHEUMATOID ARTHRITIS
     Dosage: LAST DOSE PRIOR TO SAE: 17 JAN 2012
     Route: 042
     Dates: start: 20111027

REACTIONS (1)
  - BURSITIS [None]
